FAERS Safety Report 16747459 (Version 2)
Quarter: 2019Q4

REPORT INFORMATION
  Report Type: Spontaneous
  Country: CN (occurrence: CN)
  Receive Date: 20190827
  Receipt Date: 20191008
  Transmission Date: 20200122
  Serious: Yes (Other)
  Sender: FDA-Public Use
  Company Number: CN-UCBSA-2019033156

PATIENT
  Age: 4 Year
  Sex: Male
  Weight: 19 kg

DRUGS (4)
  1. CLONAZEPAM. [Suspect]
     Active Substance: CLONAZEPAM
     Indication: EPILEPSY
     Dosage: 0.5 MILLIGRAM, 2X/DAY (BID)
     Dates: start: 2016
  2. SODIUM VALPROATE [Suspect]
     Active Substance: VALPROATE SODIUM
     Indication: EPILEPSY
     Dosage: 6 MILLILITER, 2X/DAY (BID)
     Dates: start: 2016
  3. KEPPRA [Suspect]
     Active Substance: LEVETIRACETAM
     Dosage: DOSE REDUCED
  4. KEPPRA [Suspect]
     Active Substance: LEVETIRACETAM
     Indication: EPILEPSY
     Dosage: 0.25 G IN MORNING, 0.375G IN THE EVENING
     Route: 048
     Dates: start: 2014, end: 20180627

REACTIONS (5)
  - Mental impairment [Recovered/Resolved]
  - Gait disturbance [Unknown]
  - Seizure [Recovered/Resolved]
  - Off label use [Unknown]
  - Multiple-drug resistance [Unknown]

NARRATIVE: CASE EVENT DATE: 2016
